FAERS Safety Report 6385890-8 (Version None)
Quarter: 2009Q4

REPORT INFORMATION
  Report Type: 
  Country: None (occurrence: None)
  Receive Date: 20091002
  Receipt Date: 20090113
  Transmission Date: 20100525
  Serious: No
  Sender: FDA-Public Use
  Company Number: US-ASTRAZENECA-2009UW01095

PATIENT
  Age: 86 Year
  Sex: Female
  Weight: 63.5 kg

DRUGS (6)
  1. ARIMIDEX [Suspect]
     Indication: BREAST CANCER
     Route: 048
     Dates: start: 20080101
  2. BONIVA [Concomitant]
  3. NORVASC [Concomitant]
  4. LISINOPRIL [Concomitant]
  5. DIURETIC [Concomitant]
  6. SYNTHROID [Concomitant]

REACTIONS (2)
  - BALANCE DISORDER [None]
  - VISION BLURRED [None]
